FAERS Safety Report 18102885 (Version 2)
Quarter: 2020Q3

REPORT INFORMATION
  Report Type: Spontaneous
  Country: US (occurrence: US)
  Receive Date: 20200803
  Receipt Date: 20200910
  Transmission Date: 20201103
  Serious: No
  Sender: FDA-Public Use
  Company Number: US-HORIZON-TEP-1132-2020

PATIENT
  Age: 66 Year
  Sex: Female

DRUGS (1)
  1. TEPEZZA [Suspect]
     Active Substance: TEPROTUMUMAB-TRBW
     Indication: ENDOCRINE OPHTHALMOPATHY
     Route: 042
     Dates: start: 20200327

REACTIONS (3)
  - Blood pressure increased [Recovered/Resolved]
  - Muscle spasms [Not Recovered/Not Resolved]
  - Headache [Unknown]
